FAERS Safety Report 5380778-3 (Version None)
Quarter: 2007Q3

REPORT INFORMATION
  Report Type: 
  Country: None (occurrence: None)
  Receive Date: 20070706
  Receipt Date: 20070703
  Transmission Date: 20080115
  Serious: Yes (Hospitalization)
  Sender: FDA-Public Use
  Company Number: B0462168A

PATIENT
  Age: 53 Year
  Sex: Female

DRUGS (11)
  1. VALTREX [Suspect]
     Indication: HERPES SIMPLEX
     Dosage: 500MG PER DAY
     Route: 048
     Dates: start: 20050702, end: 20050705
  2. NORVASC [Concomitant]
     Route: 048
  3. ALLOPURINOL [Concomitant]
     Route: 048
  4. FLUITRAN [Concomitant]
     Route: 048
  5. ALDOMET [Concomitant]
     Route: 048
  6. RENAGEL [Concomitant]
     Route: 048
  7. MEVALOTIN [Concomitant]
     Route: 048
  8. CARDENALIN [Concomitant]
     Route: 048
  9. FUROSEMIDE [Concomitant]
     Route: 065
  10. CALTAN [Concomitant]
     Route: 048
  11. D-SORBITOL [Concomitant]
     Route: 065

REACTIONS (2)
  - DYSARTHRIA [None]
  - TREMOR [None]
